FAERS Safety Report 16254243 (Version 13)
Quarter: 2021Q3

REPORT INFORMATION
  Report Type: Report from Study
  Country: US (occurrence: US)
  Receive Date: 20190430
  Receipt Date: 20210731
  Transmission Date: 20211014
  Serious: Yes (Other)
  Sender: FDA-Public Use
  Company Number: PHEH2019US017791

PATIENT
  Age: 12 Year
  Sex: Male
  Weight: 95.25 kg

DRUGS (10)
  1. ILARIS [Suspect]
     Active Substance: CANAKINUMAB
     Dosage: 150 MG, QW
     Route: 058
  2. INDOMETHACIN. [Suspect]
     Active Substance: INDOMETHACIN
     Indication: RASH
  3. METHOTREXATE. [Suspect]
     Active Substance: METHOTREXATE
     Indication: ARTHRITIS
  4. ILARIS [Suspect]
     Active Substance: CANAKINUMAB
     Indication: HAEMOPHAGOCYTIC LYMPHOHISTIOCYTOSIS
     Dosage: UNK UNK, QMO
     Route: 058
     Dates: start: 20160802
  5. METHOTREXATE. [Suspect]
     Active Substance: METHOTREXATE
     Indication: STILL^S DISEASE
     Dosage: UNK, QW
     Route: 065
  6. ILARIS [Suspect]
     Active Substance: CANAKINUMAB
     Dosage: 150 MG, QW
     Route: 058
     Dates: start: 20190804
  7. ILARIS [Suspect]
     Active Substance: CANAKINUMAB
     Indication: STILL^S DISEASE
     Dosage: UNK
     Route: 065
     Dates: start: 20160801
  8. ILARIS [Suspect]
     Active Substance: CANAKINUMAB
     Dosage: 160 MG, Q2W
     Route: 058
     Dates: start: 2018
  9. INDOMETHACIN. [Suspect]
     Active Substance: INDOMETHACIN
     Indication: STILL^S DISEASE
     Dosage: UNK
     Route: 065
     Dates: start: 201702
  10. METHOTREXATE. [Suspect]
     Active Substance: METHOTREXATE
     Indication: PAIN

REACTIONS (23)
  - Condition aggravated [Not Recovered/Not Resolved]
  - Suicidal ideation [Unknown]
  - Weight decreased [Not Recovered/Not Resolved]
  - Gait disturbance [Unknown]
  - Rash [Recovering/Resolving]
  - Headache [Recovered/Resolved]
  - Inappropriate schedule of product administration [Unknown]
  - Swelling [Unknown]
  - Pyrexia [Unknown]
  - Liver function test increased [Unknown]
  - Cough [Unknown]
  - Arthritis [Unknown]
  - Pain [Recovering/Resolving]
  - Stress [Unknown]
  - Still^s disease [Not Recovered/Not Resolved]
  - Fatigue [Unknown]
  - Scar [Unknown]
  - Product dose omission issue [Unknown]
  - Nausea [Unknown]
  - Oropharyngeal pain [Recovered/Resolved]
  - Illness [Unknown]
  - Haemophagocytic lymphohistiocytosis [Unknown]
  - Serum ferritin increased [Unknown]

NARRATIVE: CASE EVENT DATE: 201702
